FAERS Safety Report 7902051-9 (Version None)
Quarter: 2011Q4

REPORT INFORMATION
  Report Type: 
  Country: None (occurrence: None)
  Receive Date: 20111108
  Receipt Date: 20110914
  Transmission Date: 20120403
  Serious: Yes (Hospitalization, Disabling)
  Sender: FDA-Public Use
  Company Number: JP-GLAXOSMITHKLINE-B0747914A

PATIENT
  Sex: Female

DRUGS (5)
  1. MEILAX [Concomitant]
     Indication: DEPRESSION
     Dosage: 1MG PER DAY
     Route: 048
  2. ROHYPNOL [Concomitant]
     Indication: DEPRESSION
     Dosage: 2MG PER DAY
     Route: 048
  3. MAGNESIUM SULFATE [Concomitant]
     Indication: CONSTIPATION
     Dosage: 2970MG PER DAY
     Route: 048
  4. LAMICTAL [Suspect]
     Indication: BIPOLAR I DISORDER
     Dosage: 50MG PER DAY
     Route: 048
     Dates: start: 20110801
  5. SEROQUEL [Concomitant]
     Indication: DEPRESSION
     Dosage: 75MG PER DAY
     Route: 048

REACTIONS (22)
  - DRUG RASH WITH EOSINOPHILIA AND SYSTEMIC SYMPTOMS [None]
  - MENINGITIS ASEPTIC [None]
  - BLOOD LACTATE DEHYDROGENASE INCREASED [None]
  - BLOOD ALKALINE PHOSPHATASE INCREASED [None]
  - VIITH NERVE PARALYSIS [None]
  - GUILLAIN-BARRE SYNDROME [None]
  - GAMMA-GLUTAMYLTRANSFERASE INCREASED [None]
  - LIVER DISORDER [None]
  - WHITE BLOOD CELL COUNT INCREASED [None]
  - ERYTHEMA [None]
  - C-REACTIVE PROTEIN INCREASED [None]
  - ALANINE AMINOTRANSFERASE INCREASED [None]
  - RASH [None]
  - LYMPHOCYTE MORPHOLOGY ABNORMAL [None]
  - INTERLEUKIN-2 RECEPTOR INCREASED [None]
  - MUSCULAR WEAKNESS [None]
  - ARTHRALGIA [None]
  - ASPARTATE AMINOTRANSFERASE INCREASED [None]
  - EOSINOPHILIA [None]
  - SARCOIDOSIS [None]
  - PYREXIA [None]
  - LYMPHADENOPATHY [None]
